FAERS Safety Report 20486616 (Version 2)
Quarter: 2022Q1

REPORT INFORMATION
  Report Type: Spontaneous
  Country: US (occurrence: US)
  Receive Date: 20220217
  Receipt Date: 20220225
  Transmission Date: 20220423
  Serious: No
  Sender: FDA-Public Use
  Company Number: US-BAYER-2022A024822

PATIENT
  Sex: Male

DRUGS (1)
  1. KOGENATE FS [Suspect]
     Active Substance: ANTIHEMOPHILIC FACTOR, HUMAN RECOMBINANT
     Dosage: 3700 IU, PRN
     Route: 042
     Dates: start: 200910

REACTIONS (1)
  - Muscle injury [None]
